FAERS Safety Report 9412927 (Version 1)
Quarter: 2013Q3

REPORT INFORMATION
  Report Type: Spontaneous
  Country: JP (occurrence: JP)
  Receive Date: 20130722
  Receipt Date: 20130722
  Transmission Date: 20140515
  Serious: Yes (Death, Hospitalization)
  Sender: FDA-Public Use
  Company Number: JP-TEVA-419664ISR

PATIENT
  Age: 61 Year
  Sex: Female

DRUGS (4)
  1. PREDNISOLONE [Suspect]
     Indication: RHEUMATOID ARTHRITIS
     Route: 065
  2. ABATACEPT [Suspect]
     Indication: RHEUMATOID ARTHRITIS
     Route: 042
  3. METHOTREXATE [Suspect]
     Indication: RHEUMATOID ARTHRITIS
     Route: 065
  4. NECROSIS FACTOR [Suspect]

REACTIONS (9)
  - Acute disseminated encephalomyelitis [Fatal]
  - Herpes zoster [Fatal]
  - Infection reactivation [Fatal]
  - Epstein-Barr virus infection [Fatal]
  - Cytomegalovirus infection [Fatal]
  - Cytomegalovirus chorioretinitis [Fatal]
  - Sepsis [Fatal]
  - Pneumonia [Fatal]
  - Fungal infection [Fatal]
